FAERS Safety Report 5710772-1 (Version None)
Quarter: 2008Q2

REPORT INFORMATION
  Report Type: 
  Country: None (occurrence: None)
  Receive Date: 20080418
  Receipt Date: 20080418
  Transmission Date: 20081010
  Serious: No
  Sender: FDA-Public Use
  Company Number: None

PATIENT
  Age: 61 Year
  Sex: Female
  Weight: 70.3075 kg

DRUGS (1)
  1. POTASSIUM CHLORIDE [Suspect]
     Dosage: 10 MEQ DAILY PO
     Route: 048
     Dates: start: 20080215, end: 20080417

REACTIONS (1)
  - MEDICATION RESIDUE [None]
